FAERS Safety Report 25844087 (Version 1)
Quarter: 2025Q3

REPORT INFORMATION
  Report Type: Spontaneous
  Country: CA (occurrence: CA)
  Receive Date: 20250925
  Receipt Date: 20250925
  Transmission Date: 20251021
  Serious: Yes (Other)
  Sender: ACCORD
  Company Number: None

PATIENT
  Age: 57 Year
  Sex: Female

DRUGS (10)
  1. METHOTREXATE SODIUM [Suspect]
     Active Substance: METHOTREXATE SODIUM
     Indication: Uveitis
     Route: 065
  2. ACETAZOLAMIDE [Concomitant]
     Active Substance: ACETAZOLAMIDE
  3. BRINZOLAMIDE [Concomitant]
     Active Substance: BRINZOLAMIDE
  4. BRINZOLAMIDE\TIMOLOL [Concomitant]
     Active Substance: BRINZOLAMIDE\TIMOLOL
  5. CYCLOPENTOLATE [Concomitant]
     Active Substance: CYCLOPENTOLATE
  6. DEXAMETHASONE [Concomitant]
     Active Substance: DEXAMETHASONE
  7. FOLIC ACID [Concomitant]
     Active Substance: FOLIC ACID
  8. NEVANAC [Concomitant]
     Active Substance: NEPAFENAC
  9. VITAMIN D [Concomitant]
     Active Substance: VITAMIN D NOS
  10. LATANOPROSTENE BUNOD [Concomitant]
     Active Substance: LATANOPROSTENE BUNOD

REACTIONS (2)
  - Ocular discomfort [Not Recovered/Not Resolved]
  - Off label use [Not Recovered/Not Resolved]
